FAERS Safety Report 9582834 (Version 1)
Quarter: 2013Q4

REPORT INFORMATION
  Report Type: Spontaneous
  Country: US (occurrence: US)
  Receive Date: 20131002
  Receipt Date: 20131002
  Transmission Date: 20140711
  Serious: No
  Sender: FDA-Public Use
  Company Number: US-AMGEN-USASP2013042963

PATIENT
  Age: 48 Year
  Sex: Female
  Weight: 61.22 kg

DRUGS (4)
  1. ENBREL [Suspect]
     Indication: PRODUCT USED FOR UNKNOWN INDICATION
     Dosage: 50 MG, QWK
     Route: 058
  2. CYMBALTA [Concomitant]
     Dosage: 20 MG, UNK
  3. ZYRTEC [Concomitant]
     Dosage: 10 MG, UNK
  4. TRAZODONE [Concomitant]
     Dosage: 50 MG, UNK

REACTIONS (1)
  - Therapeutic response decreased [Unknown]
